FAERS Safety Report 16838997 (Version 1)
Quarter: 2019Q3

REPORT INFORMATION
  Report Type: Spontaneous
  Country: AT (occurrence: AT)
  Receive Date: 20190923
  Receipt Date: 20190923
  Transmission Date: 20191005
  Serious: Yes (Other)
  Sender: FDA-Public Use
  Company Number: AT-TEVA-2019-AT-1110772

PATIENT
  Age: 76 Year
  Sex: Female

DRUGS (5)
  1. TRIPRIM 100 MG - TABLETTEN [Suspect]
     Active Substance: TRIMETHOPRIM
     Route: 048
     Dates: start: 20190618, end: 20190623
  2. PANTOPRAZOL +PHARMA 20 MG MAGENSAFTRESISTENTE TABLETTEN [Concomitant]
     Route: 048
  3. EUTHYROX 25 MIKROGRAMM-TABLETTEN [Concomitant]
     Route: 048
  4. VENOSIN RETARD 50 MG-KAPSELN [Concomitant]
     Route: 048
  5. SIMVASTATIN +PHARMA 20 MG FILMTABLETTEN [Concomitant]
     Route: 048

REACTIONS (4)
  - Pruritus [Recovered/Resolved]
  - Type IV hypersensitivity reaction [Recovered/Resolved]
  - Swelling [Recovered/Resolved]
  - Rash [Recovered/Resolved]

NARRATIVE: CASE EVENT DATE: 20190624
